FAERS Safety Report 8511529-9 (Version None)
Quarter: 2012Q3

REPORT INFORMATION
  Report Type: 
  Country: None (occurrence: None)
  Receive Date: 20120716
  Receipt Date: 20120711
  Transmission Date: 20120928
  Serious: Yes (Other)
  Sender: FDA-Public Use
  Company Number: US-PFIZER INC-2012166983

PATIENT
  Sex: Female

DRUGS (1)
  1. XANAX [Suspect]
     Dosage: UNK

REACTIONS (3)
  - ROAD TRAFFIC ACCIDENT [None]
  - LIMB CRUSHING INJURY [None]
  - LOWER LIMB FRACTURE [None]
